FAERS Safety Report 19782310 (Version 2)
Quarter: 2021Q4

REPORT INFORMATION
  Report Type: Spontaneous
  Country: JP (occurrence: JP)
  Receive Date: 20210902
  Receipt Date: 20211015
  Transmission Date: 20220303
  Serious: Yes (Hospitalization, Other)
  Sender: FDA-Public Use
  Company Number: JP-FERRING-EVA202101290FERRINGPH

PATIENT
  Age: 81 Year
  Sex: Male
  Weight: 49 kg

DRUGS (10)
  1. DESMOPRESSIN ACETATE [Suspect]
     Active Substance: DESMOPRESSIN ACETATE
     Indication: Nocturia
     Dosage: 25 UG
     Route: 048
     Dates: start: 20210420, end: 20210622
  2. DESMOPRESSIN ACETATE [Suspect]
     Active Substance: DESMOPRESSIN ACETATE
     Dosage: 50 UG
     Route: 048
     Dates: start: 20210623, end: 20210822
  3. CAMOSTAT MESYLATE [Concomitant]
     Active Substance: CAMOSTAT MESYLATE
     Dosage: 100 MG
     Route: 048
     Dates: end: 20210823
  4. BELSOMRA [Concomitant]
     Active Substance: SUVOREXANT
     Dosage: 15 MG
     Route: 048
     Dates: end: 20210823
  5. VONOPRAZAN FUMARATE [Concomitant]
     Active Substance: VONOPRAZAN FUMARATE
     Dosage: 20 MG
     Route: 048
  6. ZOLPIDEM TARTRATE [Concomitant]
     Active Substance: ZOLPIDEM TARTRATE
     Dosage: 10 MG
     Route: 048
  7. SENNOSIDES [Concomitant]
     Active Substance: SENNOSIDES
     Dosage: 12 MG
     Route: 048
     Dates: end: 20210823
  8. TADALAFIL [Concomitant]
     Active Substance: TADALAFIL
     Route: 065
  9. VONOPRAZAN FUMARATE [Concomitant]
     Active Substance: VONOPRAZAN FUMARATE
     Route: 065
  10. SUVOREXANT [Concomitant]
     Active Substance: SUVOREXANT
     Route: 065

REACTIONS (7)
  - Spinal compression fracture [Unknown]
  - Spinal compression fracture [Unknown]
  - Hyponatraemia [Not Recovered/Not Resolved]
  - Altered state of consciousness [Unknown]
  - Condition aggravated [Not Recovered/Not Resolved]
  - Decreased appetite [Recovering/Resolving]
  - Cognitive disorder [Recovering/Resolving]

NARRATIVE: CASE EVENT DATE: 20210801
